FAERS Safety Report 13265157 (Version 1)
Quarter: 2017Q1

REPORT INFORMATION
  Report Type: Spontaneous
  Country: US (occurrence: US)
  Receive Date: 20170223
  Receipt Date: 20170223
  Transmission Date: 20170428
  Serious: No
  Sender: FDA-Public Use
  Company Number: US-PURDUE-USA-2017-0136129

PATIENT
  Age: 50 Year
  Sex: Male

DRUGS (2)
  1. HYSINGLA ER [Suspect]
     Active Substance: HYDROCODONE BITARTRATE
     Indication: PRODUCT USED FOR UNKNOWN INDICATION
     Route: 048
  2. BENZO [Concomitant]
     Active Substance: BENZYL BENZOATE
     Indication: PRODUCT USED FOR UNKNOWN INDICATION
     Route: 048

REACTIONS (1)
  - Nausea [Recovered/Resolved]
